FAERS Safety Report 13819312 (Version 2)
Quarter: 2017Q3

REPORT INFORMATION
  Report Type: Spontaneous
  Country: JP (occurrence: JP)
  Receive Date: 20170801
  Receipt Date: 20170925
  Transmission Date: 20171127
  Serious: Yes (Hospitalization, Other)
  Sender: FDA-Public Use
  Company Number: JP-JNJFOC-20170728024

PATIENT
  Age: 82 Year
  Sex: Male

DRUGS (2)
  1. WARFARIN SODIUM. [Interacting]
     Active Substance: WARFARIN SODIUM
     Indication: ATRIAL FIBRILLATION
     Route: 065
  2. TRAMAL [Suspect]
     Active Substance: TRAMADOL
     Indication: PAIN
     Route: 048

REACTIONS (4)
  - Drug interaction [Unknown]
  - Cardiac failure [Unknown]
  - Pulmonary alveolar haemorrhage [Recovered/Resolved]
  - International normalised ratio increased [Unknown]
